FAERS Safety Report 22360709 (Version 1)
Quarter: 2023Q2

REPORT INFORMATION
  Report Type: Spontaneous
  Country: US (occurrence: US)
  Receive Date: 20230524
  Receipt Date: 20230524
  Transmission Date: 20230721
  Serious: No
  Sender: FDA-Public Use
  Company Number: US-drreddys-LIT/USA/23/0164549

PATIENT
  Age: 57 Year
  Sex: Female

DRUGS (8)
  1. MINOCYCLINE HYDROCHLORIDE [Suspect]
     Active Substance: MINOCYCLINE HYDROCHLORIDE
     Indication: Granuloma annulare
     Dosage: ONCE A MONTH FOR THREE MONTHS
     Route: 048
  2. OFLOXACIN [Suspect]
     Active Substance: OFLOXACIN
     Indication: Granuloma annulare
  3. CLOBETASOL [Suspect]
     Active Substance: CLOBETASOL
     Indication: Granuloma annulare
     Dosage: 0.05%, TWO TIMES A DAY, 5 TIMES WEEKLY
  4. RIFAMPIN [Suspect]
     Active Substance: RIFAMPIN
     Indication: Granuloma annulare
  5. RUXOLITINIB [Suspect]
     Active Substance: RUXOLITINIB
     Indication: Granuloma annulare
     Route: 061
  6. TRIAMCINOLONE [Suspect]
     Active Substance: TRIAMCINOLONE
     Indication: Granuloma annulare
     Route: 026
  7. ETANERCEPT [Concomitant]
     Active Substance: ETANERCEPT
     Indication: Rheumatoid arthritis
  8. METHOTREXATE [Concomitant]
     Active Substance: METHOTREXATE
     Indication: Rheumatoid arthritis

REACTIONS (2)
  - Granuloma annulare [Recovering/Resolving]
  - Drug ineffective for unapproved indication [Unknown]
